FAERS Safety Report 9835963 (Version 2)
Quarter: 2014Q1

REPORT INFORMATION
  Report Type: Spontaneous
  Country: US (occurrence: US)
  Receive Date: 20140122
  Receipt Date: 20140303
  Transmission Date: 20141002
  Serious: No
  Sender: FDA-Public Use
  Company Number: US-GILEAD-2014-0092639

PATIENT
  Age: 50 Year
  Sex: Male

DRUGS (2)
  1. LETAIRIS [Suspect]
     Indication: HEART DISEASE CONGENITAL
     Dosage: 5 MG, UNK
     Route: 065
     Dates: start: 20121204
  2. LETAIRIS [Suspect]
     Indication: PULMONARY HYPERTENSION

REACTIONS (2)
  - Haemoptysis [Recovered/Resolved]
  - Throat irritation [Unknown]
